FAERS Safety Report 6597833-2 (Version None)
Quarter: 2010Q1

REPORT INFORMATION
  Report Type: 
  Country: None (occurrence: None)
  Receive Date: 20100216
  Receipt Date: 20100204
  Transmission Date: 20100710
  Serious: Yes (Hospitalization)
  Sender: FDA-Public Use
  Company Number: 2010AL000882

PATIENT
  Age: 56 Year
  Sex: Male

DRUGS (9)
  1. RAMIPRIL [Suspect]
     Indication: HYPERTENSION
     Dosage: 2.5 MG;BID;PO
     Route: 048
     Dates: start: 20000101
  2. SPIRONOLACTONE [Suspect]
     Indication: HYPERTENSION
     Dosage: 25 MG;QD;PO
     Route: 048
     Dates: start: 20030101
  3. AZATHIOPRINE [Concomitant]
  4. SIMVASTATIN [Concomitant]
  5. METOPROLOL TARTRATE [Concomitant]
  6. CLOPIDOGREL [Concomitant]
  7. HUMALOG [Concomitant]
  8. LANTUS [Concomitant]
  9. ALCOHOL [Concomitant]

REACTIONS (5)
  - DECREASED APPETITE [None]
  - DISORIENTATION [None]
  - EPIGASTRIC DISCOMFORT [None]
  - HEPATIC CIRRHOSIS [None]
  - PANCYTOPENIA [None]
